FAERS Safety Report 10372156 (Version 3)
Quarter: 2014Q4

REPORT INFORMATION
  Report Type: Spontaneous
  Country: FR (occurrence: FR)
  Receive Date: 20140808
  Receipt Date: 20141009
  Transmission Date: 20150528
  Serious: Yes (Death, Other)
  Sender: FDA-Public Use
  Company Number: FR-ALEXION PHARMACEUTICALS INC.-A201402974

PATIENT

DRUGS (2)
  1. SOLIRIS [Suspect]
     Active Substance: ECULIZUMAB
     Indication: ESCHERICHIA TEST POSITIVE
     Route: 042
  2. SOLIRIS [Suspect]
     Active Substance: ECULIZUMAB
     Indication: OFF LABEL USE
     Dosage: 600 MG, UNK
     Route: 042
     Dates: start: 20140729

REACTIONS (6)
  - Off label use [Unknown]
  - Cardiac failure [Unknown]
  - Myocardial infarction [Fatal]
  - Arrhythmia [Fatal]
  - Thrombotic microangiopathy [Fatal]
  - Blood potassium abnormal [Unknown]

NARRATIVE: CASE EVENT DATE: 20140801
